FAERS Safety Report 16940150 (Version 1)
Quarter: 2019Q4

REPORT INFORMATION
  Report Type: Spontaneous
  Country: US (occurrence: US)
  Receive Date: 20191021
  Receipt Date: 20191021
  Transmission Date: 20200122
  Serious: Yes (Other)
  Sender: FDA-Public Use
  Company Number: US-TORRENT-00009365

PATIENT
  Age: 76 Year
  Sex: Female
  Weight: 52 kg

DRUGS (1)
  1. LOSARTAN. [Suspect]
     Active Substance: LOSARTAN
     Indication: HYPERTENSION
     Dosage: ONE TABLET DAILY FROM 10 YEARS
     Dates: start: 2009, end: 20190517

REACTIONS (13)
  - Liver disorder [Recovering/Resolving]
  - Weight decreased [Recovering/Resolving]
  - Skin wrinkling [Recovering/Resolving]
  - Premature ageing [Recovering/Resolving]
  - Middle insomnia [Unknown]
  - Renal impairment [Recovering/Resolving]
  - Gait disturbance [Recovering/Resolving]
  - Fatigue [Recovering/Resolving]
  - Confusional state [Recovered/Resolved]
  - Hepatic enzyme increased [Recovering/Resolving]
  - Off label use [Unknown]
  - Withdrawal syndrome [Unknown]
  - Gallbladder disorder [Recovering/Resolving]

NARRATIVE: CASE EVENT DATE: 2018
